FAERS Safety Report 9505686 (Version 1)
Quarter: 2013Q1

REPORT INFORMATION
  Report Type: Spontaneous
  Country: US (occurrence: None)
  Receive Date: 20130220
  Receipt Date: 20130220
  Transmission Date: 20140127
  Serious: No
  Sender: FDA-Public Use
  Company Number: 1000040136

PATIENT
  Age: 70 Year
  Sex: Male

DRUGS (8)
  1. VIIBRYD (VILAZODONE HYDROCHLORIDE) [Suspect]
     Indication: DEPRESSION
     Route: 048
     Dates: start: 20120926, end: 20121002
  2. ARMOUR THYROID (THYROID) [Concomitant]
  3. NORVASC (AMLODIPINE BESILATE) [Concomitant]
  4. HYDROCHLOROTHIAZIDE [Concomitant]
  5. KHLOR-CON (POTASSIUM CHLORIDE) [Concomitant]
  6. BENICAR (OLMESARTAN MEDOXOMIL) [Concomitant]
  7. METFORMIN (METFORMIN) [Concomitant]
  8. LOPRESSOR (METOPROLOL TARTRATE) [Concomitant]

REACTIONS (4)
  - Palpitations [None]
  - Abdominal pain [None]
  - Blood glucose increased [None]
  - Laboratory test abnormal [None]
